FAERS Safety Report 10181140 (Version 1)
Quarter: 2014Q2

REPORT INFORMATION
  Report Type: Spontaneous
  Country: US (occurrence: US)
  Receive Date: 20140519
  Receipt Date: 20140519
  Transmission Date: 20141212
  Serious: No
  Sender: FDA-Public Use
  Company Number: US-AMGEN INC.-USASP2014026888

PATIENT
  Age: 81 Year
  Sex: Male

DRUGS (8)
  1. PROLIA [Suspect]
     Indication: OSTEOPOROSIS
     Dosage: UNK
     Route: 065
     Dates: start: 20140221
  2. SYNTHROID [Concomitant]
  3. PRIMIDONE [Concomitant]
  4. HCTZ [Concomitant]
  5. PROPRANOLOL [Concomitant]
  6. VITAMIN D                          /00107901/ [Concomitant]
  7. TAMSULOSIN [Concomitant]
  8. VITAMIN C                          /00008001/ [Concomitant]

REACTIONS (1)
  - Myalgia [Unknown]
